FAERS Safety Report 14548030 (Version 1)
Quarter: 2018Q1

REPORT INFORMATION
  Report Type: Spontaneous
  Country: FR (occurrence: FR)
  Receive Date: 20180219
  Receipt Date: 20180219
  Transmission Date: 20180509
  Serious: Yes (Other)
  Sender: FDA-Public Use
  Company Number: FR-TEVA-2018-FR-861510

PATIENT
  Age: 63 Year
  Sex: Male

DRUGS (1)
  1. LEVACT [Suspect]
     Active Substance: BENDAMUSTINE HYDROCHLORIDE
     Indication: MALIGNANT LYMPHOID NEOPLASM
     Route: 042

REACTIONS (2)
  - Dermatitis allergic [Recovered/Resolved]
  - Respiratory disorder [Recovered/Resolved]

NARRATIVE: CASE EVENT DATE: 20170403
